FAERS Safety Report 21377269 (Version 1)
Quarter: 2022Q3

REPORT INFORMATION
  Report Type: Report from Study
  Country: CN (occurrence: CN)
  Receive Date: 20220926
  Receipt Date: 20220926
  Transmission Date: 20221027
  Serious: Yes (Other)
  Sender: FDA-Public Use
  Company Number: CN-GSK-CN2022GSK136017

PATIENT

DRUGS (2)
  1. DOLUTEGRAVIR [Suspect]
     Active Substance: DOLUTEGRAVIR
     Indication: HIV infection
     Dosage: UNK
  2. LAMIVUDINE [Suspect]
     Active Substance: LAMIVUDINE
     Indication: HIV infection
     Dosage: UNK

REACTIONS (8)
  - Cytomegalovirus chorioretinitis [Unknown]
  - Immune reconstitution inflammatory syndrome [Unknown]
  - Necrotising retinitis [Unknown]
  - Eye haemorrhage [Unknown]
  - Vitritis [Unknown]
  - Retinal detachment [Unknown]
  - Vision blurred [Recovering/Resolving]
  - Visual acuity reduced [Recovering/Resolving]
